FAERS Safety Report 6186591-1 (Version None)
Quarter: 2009Q2

REPORT INFORMATION
  Report Type: 
  Country: None (occurrence: None)
  Receive Date: 20090507
  Receipt Date: 20090507
  Transmission Date: 20091009
  Serious: Yes (Life-Threatening, Hospitalization)
  Sender: FDA-Public Use
  Company Number: None

PATIENT
  Age: 55 Year
  Sex: Female
  Weight: 71.2147 kg

DRUGS (1)
  1. CIPROFLOXACIN HCL [Suspect]
     Indication: SINUSITIS
     Dosage: 500 MG 1 DAILY PO
     Route: 048
     Dates: start: 20071203, end: 20071205

REACTIONS (3)
  - POISONING [None]
  - PRODUCT QUALITY ISSUE [None]
  - RESPIRATORY ARREST [None]
